FAERS Safety Report 10220110 (Version 3)
Quarter: 2014Q2

REPORT INFORMATION
  Report Type: Report from Study
  Country: US (occurrence: US)
  Receive Date: 20140605
  Receipt Date: 20140617
  Transmission Date: 20141212
  Serious: Yes (Hospitalization)
  Sender: FDA-Public Use
  Company Number: US-ACTELION-A-NJ2013-83527

PATIENT
  Age: 75 Year
  Sex: Male

DRUGS (11)
  1. TRACLEER [Suspect]
     Indication: PULMONARY ARTERIAL HYPERTENSION
     Dosage: 125 MG, BID
     Route: 048
     Dates: start: 2011
  2. TRACLEER [Suspect]
     Dosage: 125 MG, QD
     Route: 048
     Dates: start: 201003
  3. TYVASO [Suspect]
     Dosage: 9 PUFF, UNK
     Dates: start: 2009
  4. REVATIO [Suspect]
     Dosage: 40 MG, BID
     Dates: start: 2009
  5. FLOMAX [Concomitant]
     Dosage: 0.4 MG, BID
     Dates: start: 2011
  6. PRAVACHOL [Concomitant]
     Dosage: 20 MG, QD
     Dates: start: 2013
  7. ASA [Concomitant]
     Dosage: 81 MG, QD
     Dates: start: 201309
  8. LASIX [Concomitant]
     Dosage: 40 MG, QD
  9. OXYGEN [Concomitant]
  10. JANTOVEN [Concomitant]
     Dosage: 5 MG, BID
     Dates: start: 2013
  11. KLOR-CON [Concomitant]
     Dosage: 20 MG, QD

REACTIONS (18)
  - Lower limb fracture [Not Recovered/Not Resolved]
  - Arthroscopy [Unknown]
  - Rib fracture [Not Recovered/Not Resolved]
  - Rotator cuff syndrome [Not Recovered/Not Resolved]
  - Arthropathy [Not Recovered/Not Resolved]
  - Fall [Recovered/Resolved]
  - Sinusitis [Not Recovered/Not Resolved]
  - Nocturnal dyspnoea [Not Recovered/Not Resolved]
  - Muscle spasms [Not Recovered/Not Resolved]
  - Contusion [Not Recovered/Not Resolved]
  - Depression [Not Recovered/Not Resolved]
  - Dyspnoea [Unknown]
  - Dysuria [Not Recovered/Not Resolved]
  - Prostatic specific antigen increased [Not Recovered/Not Resolved]
  - Headache [Not Recovered/Not Resolved]
  - Asthenia [Not Recovered/Not Resolved]
  - Weight increased [Not Recovered/Not Resolved]
  - Fear of falling [Not Recovered/Not Resolved]
